FAERS Safety Report 23131049 (Version 7)
Quarter: 2024Q4

REPORT INFORMATION
  Report Type: Spontaneous
  Country: US (occurrence: US)
  Receive Date: 20231031
  Receipt Date: 20241218
  Transmission Date: 20250115
  Serious: Yes (Hospitalization, Other)
  Sender: SANOFI AVENTIS
  Company Number: US-SA-SAC20231025000731

PATIENT
  Age: 34 Year
  Sex: Female

DRUGS (2)
  1. DUPIXENT [Suspect]
     Active Substance: DUPILUMAB
     Indication: Eczema
     Dosage: 600 MG, 1X
     Route: 058
     Dates: start: 20230926, end: 20230926
  2. DUPIXENT [Suspect]
     Active Substance: DUPILUMAB
     Dosage: 300 MG, QOW
     Route: 058
     Dates: start: 202310

REACTIONS (14)
  - Lymphadenopathy [Unknown]
  - Lymphoma [Unknown]
  - Fatigue [Recovered/Resolved]
  - Influenza [Unknown]
  - Fatigue [Unknown]
  - Respiratory disorder [Unknown]
  - Pain [Unknown]
  - Sarcoidosis [Unknown]
  - Pyrexia [Recovered/Resolved]
  - Dermatitis atopic [Unknown]
  - Eczema [Unknown]
  - Blister [Unknown]
  - Skin fissures [Unknown]
  - Inappropriate schedule of product administration [Unknown]

NARRATIVE: CASE EVENT DATE: 20231001
